FAERS Safety Report 21339173 (Version 1)
Quarter: 2022Q3

REPORT INFORMATION
  Report Type: Spontaneous
  Country: CN (occurrence: CN)
  Receive Date: 20220915
  Receipt Date: 20220915
  Transmission Date: 20221027
  Serious: Yes (Other)
  Sender: FDA-Public Use
  Company Number: CN-PFIZER INC-PV202200062960

PATIENT
  Age: 75 Year
  Sex: Female
  Weight: 61 kg

DRUGS (3)
  1. CELECOXIB [Suspect]
     Active Substance: CELECOXIB
     Indication: Arthropathy
     Dosage: 0.2 G, 2X/DAY
     Route: 048
     Dates: start: 20220906, end: 20220906
  2. GLUCOSAMINE SULFATE [Suspect]
     Active Substance: GLUCOSAMINE SULFATE
     Indication: Arthropathy
     Dosage: 2 DF, 3X/DAY
     Route: 048
     Dates: start: 20220906, end: 20220906
  3. HERBALS [Suspect]
     Active Substance: HERBALS
     Indication: Arthropathy
     Dosage: 4 DF, 2X/DAY
     Route: 048
     Dates: start: 20220906, end: 20220906

REACTIONS (4)
  - Palpitations [Recovering/Resolving]
  - Skin warm [Recovering/Resolving]
  - Tachypnoea [Recovering/Resolving]
  - Feeling hot [Recovering/Resolving]

NARRATIVE: CASE EVENT DATE: 20220906
